FAERS Safety Report 7006102-8 (Version None)
Quarter: 2010Q3

REPORT INFORMATION
  Report Type: 
  Country: None (occurrence: None)
  Receive Date: 20100921
  Receipt Date: 20100909
  Transmission Date: 20110219
  Serious: Yes (Other)
  Sender: FDA-Public Use
  Company Number: CN-PFIZER INC-2010100087

PATIENT
  Age: 60 Year
  Sex: Male

DRUGS (3)
  1. SILDENAFIL CITRATE [Suspect]
     Indication: PULMONARY HYPERTENSION
     Dosage: 25 MG, 1X/DAY
     Route: 048
  2. SILDENAFIL CITRATE [Suspect]
     Dosage: 25 MG, 3X/DAY
     Route: 048
     Dates: end: 20100810
  3. SILDENAFIL CITRATE [Suspect]
     Dosage: 25 MG, 2X/DAY
     Route: 048
     Dates: start: 20100801

REACTIONS (1)
  - VISUAL ACUITY REDUCED [None]
